FAERS Safety Report 8986720 (Version 2)
Quarter: 2013Q3

REPORT INFORMATION
  Report Type: Spontaneous
  Country: GB (occurrence: GB)
  Receive Date: 20121227
  Receipt Date: 20130924
  Transmission Date: 20140515
  Serious: Yes (Life-Threatening, Hospitalization, Other)
  Sender: FDA-Public Use
  Company Number: PHFR2012GB006621

PATIENT
  Age: 58 Year
  Sex: Male

DRUGS (12)
  1. EXJADE [Suspect]
     Indication: IRON OVERLOAD
     Dosage: 1750 MG
     Route: 048
     Dates: end: 20121202
  2. WARFARIN [Concomitant]
     Indication: DEEP VEIN THROMBOSIS
     Dosage: UNK UKN, UNK
  3. WARFARIN [Concomitant]
     Dosage: LIFE LONG
  4. CLENIL MODULITE [Concomitant]
     Dosage: UNK UKN, UNK
  5. GLYCERYL TRINITRATE [Concomitant]
     Dosage: UKN
  6. HYOSCINE BUTYLBROMIDE [Concomitant]
     Dosage: UNK UKN, UNK
  7. SIMVASTATIN [Concomitant]
     Dosage: UNK UKN, UNK
  8. RAMIPRIL [Concomitant]
     Dosage: UNK UKN, UNK
  9. ALVERINE [Concomitant]
     Dosage: UNK UKN, UNK
  10. SALBUTAMOL [Concomitant]
     Dosage: UNK UKN, UNK
  11. VITAMIN B COMPLEX [Concomitant]
     Dosage: UNK UKN, UNK
  12. DIPROBASE [Concomitant]
     Dosage: UNK UKN, UNK

REACTIONS (5)
  - Duodenal ulcer perforation [Recovering/Resolving]
  - Abdominal pain upper [Unknown]
  - Pancytopenia [Unknown]
  - Medication error [Unknown]
  - Peritonitis [Unknown]
